FAERS Safety Report 5051339-0 (Version None)
Quarter: 2006Q2

REPORT INFORMATION
  Report Type: 
  Country: None (occurrence: None)
  Receive Date: 20060610
  Receipt Date: 20060628
  Transmission Date: 20061013
  Serious: Yes (Hospitalization, Other)
  Sender: FDA-Public Use
  Company Number: 2006BI009350

PATIENT
  Age: 50 Year
  Sex: Female

DRUGS (1)
  1. AVONEX [Suspect]
     Indication: MULTIPLE SCLEROSIS
     Dosage: IM
     Route: 030

REACTIONS (6)
  - CONDITION AGGRAVATED [None]
  - FALL [None]
  - IMMOBILE [None]
  - LOWER LIMB FRACTURE [None]
  - PULMONARY EMBOLISM [None]
  - THROMBOSIS [None]
